FAERS Safety Report 24786540 (Version 3)
Quarter: 2025Q2

REPORT INFORMATION
  Report Type: Report from Study
  Country: US (occurrence: US)
  Receive Date: 20241230
  Receipt Date: 20250401
  Transmission Date: 20250717
  Serious: Yes (Hospitalization, Other)
  Sender: TAKEDA
  Company Number: US-TAKEDA-2024TUS128288

PATIENT
  Age: 75 Year
  Sex: Female

DRUGS (8)
  1. TEDUGLUTIDE [Suspect]
     Active Substance: TEDUGLUTIDE
     Indication: Short-bowel syndrome
     Dosage: 2.5 MILLIGRAM, QD
     Dates: start: 20151105, end: 20191002
  2. TEDUGLUTIDE [Suspect]
     Active Substance: TEDUGLUTIDE
     Dosage: 2.4 MILLIGRAM, QD
     Dates: start: 20191002, end: 20201208
  3. TEDUGLUTIDE [Suspect]
     Active Substance: TEDUGLUTIDE
     Dosage: 2.3 MILLIGRAM, QD
     Dates: start: 20201208, end: 20220802
  4. TEDUGLUTIDE [Suspect]
     Active Substance: TEDUGLUTIDE
     Dosage: 2.4 MILLIGRAM, QD
     Dates: start: 20220802, end: 20240219
  5. TEDUGLUTIDE [Suspect]
     Active Substance: TEDUGLUTIDE
     Dosage: 1.9 MILLIGRAM, QD
     Dates: start: 20240610
  6. CALCITRIOL [Concomitant]
     Active Substance: CALCITRIOL
     Indication: Hypocalcaemia
     Dosage: 0.5 MICROGRAM, QD
     Dates: start: 20230417
  7. AMLODIPINE [Concomitant]
     Active Substance: AMLODIPINE BESYLATE
     Indication: Cardiac failure
     Dosage: 5 MILLIGRAM, QD
     Dates: start: 20230421
  8. HUMIRA [Concomitant]
     Active Substance: ADALIMUMAB
     Indication: Crohn^s disease
     Dosage: 40 MILLIGRAM, QD

REACTIONS (2)
  - Calciphylaxis [Recovered/Resolved]
  - Arthritis infective [Recovered/Resolved]

NARRATIVE: CASE EVENT DATE: 20240802
